FAERS Safety Report 22368912 (Version 1)
Quarter: 2023Q2

REPORT INFORMATION
  Report Type: Spontaneous
  Country: US (occurrence: US)
  Receive Date: 20230525
  Receipt Date: 20230525
  Transmission Date: 20230722
  Serious: Yes (Other)
  Sender: FDA-Public Use
  Company Number: US-BAUSCHBL-2023BNL004406

PATIENT
  Age: 68 Year
  Sex: Female

DRUGS (1)
  1. MIOCHOL E [Suspect]
     Active Substance: ACETYLCHOLINE CHLORIDE
     Indication: Preoperative care
     Route: 065

REACTIONS (2)
  - Corneal opacity [Recovered/Resolved]
  - Product preparation error [Unknown]
